FAERS Safety Report 5643579-4 (Version None)
Quarter: 2008Q1

REPORT INFORMATION
  Report Type: 
  Country: None (occurrence: None)
  Receive Date: 20080228
  Receipt Date: 20080219
  Transmission Date: 20080703
  Serious: Yes (Other)
  Sender: FDA-Public Use
  Company Number: GB-PFIZER INC-2008016809

PATIENT
  Age: 31 Year
  Sex: Female
  Weight: 73 kg

DRUGS (2)
  1. CHANTIX [Suspect]
     Indication: SMOKING CESSATION THERAPY
     Route: 048
     Dates: start: 20080121, end: 20080128
  2. ORAL CONTRACEPTIVE NOS [Concomitant]
     Route: 048

REACTIONS (5)
  - AGGRESSION [None]
  - DEPRESSION [None]
  - EYE DISORDER [None]
  - GINGIVAL SWELLING [None]
  - TEARFULNESS [None]
